FAERS Safety Report 7393464-5 (Version None)
Quarter: 2011Q2

REPORT INFORMATION
  Report Type: 
  Country: None (occurrence: None)
  Receive Date: 20110405
  Receipt Date: 20110324
  Transmission Date: 20111010
  Serious: Yes (Other)
  Sender: FDA-Public Use
  Company Number: RU-BAYER-2011-017698

PATIENT
  Age: 24 Year
  Sex: Female

DRUGS (4)
  1. DUPHASTON [Suspect]
     Indication: OLIGOMENORRHOEA
     Dosage: 2.5 MG, QD
     Route: 048
     Dates: start: 20100810, end: 20100820
  2. UNCODEABLE ^UNCLASSIFIABLE^ [Concomitant]
     Indication: UNEVALUABLE EVENT
  3. YAZ [Suspect]
     Indication: OLIGOMENORRHOEA
     Dosage: 1 DF, QD
     Route: 048
     Dates: start: 20100820, end: 20100914
  4. UNCODEABLE ^UNCLASSIFIABLE^ [Concomitant]
     Indication: HYPERTRICHOSIS

REACTIONS (4)
  - ABDOMINAL PAIN LOWER [None]
  - ABORTION SPONTANEOUS [None]
  - ANTEPARTUM HAEMORRHAGE [None]
  - METRORRHAGIA [None]
